FAERS Safety Report 16921057 (Version 2)
Quarter: 2024Q2

REPORT INFORMATION
  Report Type: Spontaneous
  Country: US (occurrence: US)
  Receive Date: 20191015
  Receipt Date: 20240402
  Transmission Date: 20240716
  Serious: Yes (Death, Hospitalization, Other)
  Sender: FDA-Public Use
  Company Number: US-GLAXOSMITHKLINE-NL2019GSK182607

PATIENT

DRUGS (1)
  1. LAMOTRIGINE [Suspect]
     Active Substance: LAMOTRIGINE
     Indication: Depression
     Dosage: UNK

REACTIONS (22)
  - Haemophagocytic lymphohistiocytosis [Fatal]
  - Septic shock [Fatal]
  - Pyrexia [Unknown]
  - Chills [Unknown]
  - Nausea [Unknown]
  - Vomiting [Unknown]
  - Photophobia [Unknown]
  - Neck pain [Unknown]
  - Back pain [Unknown]
  - Hypotension [Unknown]
  - Thrombocytopenia [Unknown]
  - Hepatic enzyme increased [Unknown]
  - Meningitis aseptic [Unknown]
  - Respiratory depression [Unknown]
  - Hypertransaminasaemia [Unknown]
  - Blood triglycerides increased [Unknown]
  - Blood fibrinogen decreased [Unknown]
  - Serum ferritin increased [Unknown]
  - Lymphocyte count increased [Unknown]
  - Natural killer cell activity decreased [Unknown]
  - Histiocytosis [Unknown]
  - Headache [Unknown]
